FAERS Safety Report 4415045-5 (Version None)
Quarter: 2004Q3

REPORT INFORMATION
  Report Type: 
  Country: None (occurrence: None)
  Receive Date: 20040729
  Receipt Date: 20040722
  Transmission Date: 20050211
  Serious: Yes (Other)
  Sender: FDA-Public Use
  Company Number: 232026K04USA

PATIENT
  Age: 66 Year
  Sex: Male

DRUGS (4)
  1. REBIF [Suspect]
     Indication: MULTIPLE SCLEROSIS
     Dosage: 44 MCG, 3 IN 1 WEEKS, SUBCUTANEOUS
     Route: 058
     Dates: start: 20040314
  2. SIMVASTATIN [Concomitant]
  3. FEXOFENADINE HYDROCHLORIDE [Concomitant]
  4. VALDECOXIB [Concomitant]

REACTIONS (9)
  - HYPOAESTHESIA [None]
  - INJECTION SITE ERYTHEMA [None]
  - INJECTION SITE HAEMORRHAGE [None]
  - INJECTION SITE IRRITATION [None]
  - INJECTION SITE PAIN [None]
  - INJECTION SITE REACTION [None]
  - ORAL SOFT TISSUE DISORDER [None]
  - SQUAMOUS CELL CARCINOMA OF SKIN [None]
  - VIRAL INFECTION [None]
